FAERS Safety Report 23520664 (Version 2)
Quarter: 2024Q1

REPORT INFORMATION
  Report Type: Report from Study
  Country: US (occurrence: US)
  Receive Date: 20240214
  Receipt Date: 20240304
  Transmission Date: 20240409
  Serious: Yes (Hospitalization)
  Sender: FDA-Public Use
  Company Number: US-JNJFOC-20240219592

PATIENT
  Age: 32 Year
  Sex: Female

DRUGS (6)
  1. SPRAVATO [Suspect]
     Active Substance: ESKETAMINE
     Indication: Depression
     Dosage: ^56 MG, 4 TOTAL DOSES^
     Dates: start: 20231109, end: 20231128
  2. SPRAVATO [Suspect]
     Active Substance: ESKETAMINE
     Dosage: ^84 MG, 8 TOTAL DOSES^
     Dates: start: 20231130, end: 20240206
  3. LISINOPRIL [Concomitant]
     Active Substance: LISINOPRIL
     Indication: Hypertension
  4. BUPROPION [Concomitant]
     Active Substance: BUPROPION
     Indication: Depression
  5. VRAYLAR [Concomitant]
     Active Substance: CARIPRAZINE
     Indication: Depression
  6. ADDERALL [Concomitant]
     Active Substance: AMPHETAMINE ASPARTATE\AMPHETAMINE SULFATE\DEXTROAMPHETAMINE SACCHARATE\DEXTROAMPHETAMINE SULFATE
     Indication: Depression

REACTIONS (2)
  - Cholangitis infective [Unknown]
  - Gallbladder necrosis [Unknown]

NARRATIVE: CASE EVENT DATE: 20240118
